FAERS Safety Report 15536345 (Version 1)
Quarter: 2018Q4

REPORT INFORMATION
  Report Type: Spontaneous
  Country: US (occurrence: US)
  Receive Date: 20181021
  Receipt Date: 20181021
  Transmission Date: 20190205
  Serious: Yes (Other)
  Sender: FDA-Public Use
  Company Number: None

PATIENT
  Sex: Female
  Weight: 112.5 kg

DRUGS (1)
  1. BACTRIM [Suspect]
     Active Substance: SULFAMETHOXAZOLE\TRIMETHOPRIM
     Indication: URINARY TRACT INFECTION
     Route: 048
     Dates: start: 20181020, end: 20181021

REACTIONS (5)
  - Uveitis [None]
  - Eye inflammation [None]
  - Vision blurred [None]
  - Corneal abrasion [None]
  - Eye irritation [None]

NARRATIVE: CASE EVENT DATE: 20181021
